FAERS Safety Report 8610420-7 (Version None)
Quarter: 2012Q3

REPORT INFORMATION
  Report Type: 
  Country: None (occurrence: None)
  Receive Date: 20120822
  Receipt Date: 20120815
  Transmission Date: 20120928
  Serious: No
  Sender: FDA-Public Use
  Company Number: US-PFIZER INC-2012200782

PATIENT
  Sex: Female

DRUGS (9)
  1. METFORMIN [Concomitant]
     Dosage: 500 MG, 2X/DAY
  2. NIFEDIPINE [Concomitant]
     Indication: HYPERTENSION
     Dosage: 30 MG, 1X/DAY (ER DAILY)
  3. OMEPRAZOLE [Concomitant]
     Dosage: 40 MG, 1X/DAY
  4. SANDOSTATIN [Concomitant]
     Dosage: 2 INJECTIONS EVERY MONTH
  5. LISINOPRIL [Concomitant]
     Dosage: 40 MG, 1X/DAY (DAILY)
  6. ENSURE [Concomitant]
     Indication: VITAMIN SUPPLEMENTATION
  7. HYDROCHLOROTHIAZIDE [Concomitant]
     Dosage: 25 MG, 1X/DAY
  8. SUTENT [Suspect]
     Dosage: 37.5 MG, 1X/DAY
  9. ONDANSETRON [Concomitant]
     Dosage: 4 MG, 1X/DAY (DAILY)

REACTIONS (8)
  - MENSTRUAL DISORDER [None]
  - DYSGEUSIA [None]
  - DIARRHOEA [None]
  - DECREASED APPETITE [None]
  - NAUSEA [None]
  - DIZZINESS [None]
  - VOMITING [None]
  - FATIGUE [None]
